FAERS Safety Report 9362732 (Version 1)
Quarter: 2013Q2

REPORT INFORMATION
  Report Type: Spontaneous
  Country: BR (occurrence: BR)
  Receive Date: 20130622
  Receipt Date: 20130622
  Transmission Date: 20140414
  Serious: Yes (Other)
  Sender: FDA-Public Use
  Company Number: BR-MERCK-1306BRA010549

PATIENT
  Age: 61 Year
  Sex: Female
  Weight: 70 kg

DRUGS (5)
  1. PEGINTRON [Suspect]
     Indication: HEPATITIS C
     Dosage: 80 MICROGRAM, UNK
     Route: 058
     Dates: start: 2008, end: 2008
  2. RIBAVIRIN (NON-MERCK) [Concomitant]
     Indication: HEPATITIS C
     Dosage: UNK
     Dates: start: 2008, end: 2008
  3. ANAFRANIL [Concomitant]
     Indication: BRONCHITIS
     Dosage: UNK MG, UNKNOWN
     Route: 048
     Dates: start: 1997
  4. RIVOTRIL [Concomitant]
     Indication: DEPRESSION
     Dosage: 2 MG, QPM
     Route: 048
     Dates: start: 1997
  5. RIVOTRIL [Concomitant]
     Indication: BRONCHITIS

REACTIONS (3)
  - Gastric operation [Unknown]
  - Gastric operation [Unknown]
  - Drug ineffective [Unknown]
